FAERS Safety Report 5136255-8 (Version None)
Quarter: 2006Q4

REPORT INFORMATION
  Report Type: 
  Country: None (occurrence: None)
  Receive Date: 20061027
  Receipt Date: 20060926
  Transmission Date: 20070319
  Serious: Yes (Life-Threatening)
  Sender: FDA-Public Use
  Company Number: JP-BRISTOL-MYERS SQUIBB COMPANY-13525936

PATIENT
  Age: 69 Year
  Sex: Male

DRUGS (11)
  1. TAXOL [Suspect]
     Indication: LUNG SQUAMOUS CELL CARCINOMA STAGE UNSPECIFIED
     Route: 041
     Dates: start: 20060830, end: 20060921
  2. TAXOTERE [Concomitant]
     Dates: start: 20060915
  3. MUCOSTA [Concomitant]
     Route: 048
     Dates: start: 20060902, end: 20061012
  4. VENA [Concomitant]
     Route: 048
     Dates: start: 20060830, end: 20060921
  5. DECADRON [Concomitant]
     Route: 041
     Dates: start: 20060830, end: 20060921
  6. SEROTONE [Concomitant]
     Route: 041
     Dates: start: 20060830, end: 20060921
  7. ACETAMINOPHEN [Concomitant]
     Route: 048
     Dates: start: 20060902, end: 20060921
  8. ATENOLOL [Concomitant]
     Route: 048
     Dates: start: 20060902, end: 20061012
  9. OMEPRAZOLE [Concomitant]
     Route: 048
     Dates: start: 20060906, end: 20061012
  10. RIZE [Concomitant]
     Route: 048
     Dates: start: 20060908, end: 20061012
  11. BETAMETHASONE SODIUM PHOSPHATE [Concomitant]
     Route: 048
     Dates: start: 20060912, end: 20061005

REACTIONS (1)
  - ANAPHYLACTIC REACTION [None]
